FAERS Safety Report 24684917 (Version 1)
Quarter: 2024Q4

REPORT INFORMATION
  Report Type: Spontaneous
  Country: US (occurrence: US)
  Receive Date: 20241202
  Receipt Date: 20241202
  Transmission Date: 20250115
  Serious: Yes (Other)
  Sender: AUROBINDO
  Company Number: US-AUROBINDO-AUR-APL-2024-057779

PATIENT
  Age: 51 Year
  Sex: Female

DRUGS (6)
  1. DOCETAXEL [Suspect]
     Active Substance: DOCETAXEL
     Indication: Leiomyosarcoma metastatic
     Dosage: TOTAL CUMULATIVE DOSE: 444 MG/M2 ; LIPOSOMAL FORM 79 MG/ M2
     Route: 065
  2. GEMCITABINE [Suspect]
     Active Substance: GEMCITABINE
     Indication: Leiomyosarcoma metastatic
     Dosage: TOTAL CUMULATIVE DOSE: 444 MG/M2 ; LIPOSOMAL FORM 79 MG/ M2
     Route: 065
  3. DOXORUBICIN [Suspect]
     Active Substance: DOXORUBICIN
     Indication: Leiomyosarcoma metastatic
     Dosage: TOTAL CUMULATIVE DOSE: 444 MG/M2 ; LIPOSOMAL FORM 79 MG/ M2
     Route: 065
  4. TRABECTEDIN [Concomitant]
     Active Substance: TRABECTEDIN
     Indication: Leiomyosarcoma metastatic
     Dosage: UNK
     Route: 065
  5. PREDNISONE [Concomitant]
     Active Substance: PREDNISONE
     Indication: Hepatic enzyme abnormal
     Dosage: 1  MG/KG
     Route: 065
  6. METHYLPREDNISOLONE [Concomitant]
     Active Substance: METHYLPREDNISOLONE
     Indication: Myocardial necrosis marker increased
     Dosage: 1 G IV FOR 3 DAYS WAS STARTED ON DAY 6
     Route: 042

REACTIONS (1)
  - Drug ineffective [Unknown]
